FAERS Safety Report 4412012-2 (Version None)
Quarter: 2004Q3

REPORT INFORMATION
  Report Type: 
  Country: None (occurrence: None)
  Receive Date: 20040728
  Receipt Date: 20040715
  Transmission Date: 20050211
  Serious: Yes (Hospitalization)
  Sender: FDA-Public Use
  Company Number: 2004-BP-05732BP (0)

PATIENT
  Age: 52 Year
  Sex: Male

DRUGS (8)
  1. AGGRENOX [Suspect]
     Indication: CEREBROVASCULAR ACCIDENT PROPHYLAXIS
     Dosage: SEE TEXT (SEE TEXT, 25 MG/200 MG (ONE CAPSULE BID)), PO
     Route: 048
     Dates: start: 20040522, end: 20040707
  2. VASOTEC [Concomitant]
  3. METOPROLOL (METOPROLOL) [Concomitant]
  4. LOVASTATIN [Concomitant]
  5. GLUCOPHAGE [Concomitant]
  6. AMARYL [Concomitant]
  7. LANTUS [Concomitant]
  8. ACETYLSALICYLIC ACID SRT [Concomitant]

REACTIONS (2)
  - CEREBROVASCULAR ACCIDENT [None]
  - NAUSEA [None]
